FAERS Safety Report 13263284 (Version 1)
Quarter: 2017Q1

REPORT INFORMATION
  Report Type: Spontaneous
  Country: US (occurrence: US)
  Receive Date: 20170223
  Receipt Date: 20170223
  Transmission Date: 20170428
  Serious: Yes (Hospitalization)
  Sender: FDA-Public Use
  Company Number: US-009507513-1702USA006654

PATIENT
  Age: 53 Year
  Sex: Male

DRUGS (1)
  1. ZEPATIER [Suspect]
     Active Substance: ELBASVIR\GRAZOPREVIR
     Indication: GENERAL SYMPTOM
     Dosage: 1 TABLET, ONCE DAILY
     Route: 048
     Dates: start: 20170118

REACTIONS (2)
  - Adverse event [Unknown]
  - Adverse event [Unknown]

NARRATIVE: CASE EVENT DATE: 20170208
